FAERS Safety Report 6968505-7 (Version None)
Quarter: 2010Q3

REPORT INFORMATION
  Report Type: 
  Country: None (occurrence: None)
  Receive Date: 20100907
  Receipt Date: 20100825
  Transmission Date: 20110219
  Serious: Yes (Death, Other)
  Sender: FDA-Public Use
  Company Number: JP-GENZYME-POMP-1001042

PATIENT
  Sex: Female
  Weight: 28 kg

DRUGS (2)
  1. MYOZYME [Suspect]
     Indication: GLYCOGEN STORAGE DISEASE TYPE II
     Dosage: 20 MG/KG, QOW
     Route: 042
     Dates: start: 20080728
  2. MORPHINE HYDROCHLORIDE [Concomitant]
     Indication: SEDATION
     Dosage: .5 MG, UNK
     Dates: start: 20100804, end: 20100805

REACTIONS (4)
  - CARDIAC ARREST [None]
  - RENAL FAILURE [None]
  - RESPIRATORY FAILURE [None]
  - URINARY TRACT INFECTION [None]
